FAERS Safety Report 7040186-6 (Version None)
Quarter: 2010Q3

REPORT INFORMATION
  Report Type: 
  Country: None (occurrence: None)
  Receive Date: 20100929
  Receipt Date: 20100714
  Transmission Date: 20110219
  Serious: Yes (Other)
  Sender: FDA-Public Use
  Company Number: US-WYE-H15414910

PATIENT
  Age: 30 Year
  Sex: Female
  Weight: 93.07 kg

DRUGS (2)
  1. PRISTIQ [Suspect]
     Indication: FIBROMYALGIA
     Dates: start: 20100429, end: 20100618
  2. PRISTIQ [Suspect]
     Indication: MAJOR DEPRESSION
     Dates: start: 20100429, end: 20100618

REACTIONS (1)
  - NEUROPATHY PERIPHERAL [None]
